FAERS Safety Report 6221752-4 (Version None)
Quarter: 2009Q2

REPORT INFORMATION
  Report Type: 
  Country: None (occurrence: None)
  Receive Date: 20090610
  Receipt Date: 20090528
  Transmission Date: 20091009
  Serious: Yes (Hospitalization)
  Sender: FDA-Public Use
  Company Number: ES-ELI_LILLY_AND_COMPANY-ES200905005766

PATIENT
  Age: 66 Year
  Sex: Male

DRUGS (11)
  1. FORTEO [Suspect]
     Indication: OSTEOPOROSIS
     Dosage: 20 UG, UNK
     Route: 058
     Dates: start: 20080701, end: 20090401
  2. FORTEO [Suspect]
     Dosage: 20 UG, UNK
     Route: 058
     Dates: start: 20090501
  3. ADIRO [Concomitant]
  4. GABAPENTIN [Concomitant]
  5. LORAZEPAM [Concomitant]
  6. OMEPRAZOLE [Concomitant]
     Indication: GASTRIC DISORDER
  7. PARACETAMOL [Concomitant]
  8. PLANTABEN [Concomitant]
  9. ZOVIRAX /GRC/ [Concomitant]
  10. VENLAFAXINE HCL [Concomitant]
  11. TRANKIMAZIN [Concomitant]

REACTIONS (3)
  - IMMOBILE [None]
  - LOSS OF CONSCIOUSNESS [None]
  - SYNCOPE [None]
